FAERS Safety Report 21900357 (Version 1)
Quarter: 2023Q1

REPORT INFORMATION
  Report Type: Spontaneous
  Country: US (occurrence: US)
  Receive Date: 20230123
  Receipt Date: 20230123
  Transmission Date: 20230417
  Serious: Yes (Hospitalization)
  Sender: FDA-Public Use
  Company Number: USLOXO2022001533

PATIENT
  Age: 79 Year
  Sex: Female
  Weight: 48.07 kg

DRUGS (9)
  1. BENDAMUSTINE HYDROCHLORIDE [Suspect]
     Active Substance: BENDAMUSTINE HYDROCHLORIDE
     Indication: Chronic lymphocytic leukaemia
     Dosage: 130 MG, (CYCLE 1 BR THERAPY)
     Route: 042
     Dates: start: 20220303
  2. BENDAMUSTINE HYDROCHLORIDE [Suspect]
     Active Substance: BENDAMUSTINE HYDROCHLORIDE
     Dosage: 125 MG, (CYCLE 2 BR THERAPY)
     Route: 042
     Dates: start: 20220406
  3. RITUXIMAB [Suspect]
     Active Substance: RITUXIMAB
     Indication: Chronic lymphocytic leukaemia
     Dosage: 544 MG, (CYCLE 1 BR THERAPY)
     Route: 042
     Dates: start: 20220303
  4. RITUXIMAB [Suspect]
     Active Substance: RITUXIMAB
     Dosage: 725 MG, (CYCLE 2 BR THERAPY)
     Route: 042
     Dates: start: 20220406
  5. RITUXIMAB [Suspect]
     Active Substance: RITUXIMAB
     Dosage: 725 MG
     Route: 042
     Dates: start: 20220504
  6. CLARITIN [Concomitant]
     Active Substance: LORATADINE
     Indication: Product used for unknown indication
     Dosage: UNK
     Route: 065
     Dates: start: 20191024
  7. LISINOPRIL [Concomitant]
     Active Substance: LISINOPRIL
     Indication: Product used for unknown indication
     Dosage: UNK
     Route: 065
     Dates: start: 20200116
  8. EVISTA [Concomitant]
     Active Substance: RALOXIFENE HYDROCHLORIDE
     Indication: Product used for unknown indication
     Dosage: UNK
     Route: 065
     Dates: start: 20191003
  9. ENALAPRIL [Concomitant]
     Active Substance: ENALAPRIL
     Indication: Product used for unknown indication
     Dosage: UNK
     Route: 065
     Dates: start: 20191003

REACTIONS (3)
  - Pyrexia [Recovered/Resolved]
  - Oropharyngeal pain [Recovered/Resolved]
  - Headache [Recovered/Resolved]

NARRATIVE: CASE EVENT DATE: 20220407
